FAERS Safety Report 10051067 (Version 2)
Quarter: 2014Q2

REPORT INFORMATION
  Report Type: Spontaneous
  Country: US (occurrence: US)
  Receive Date: 20140401
  Receipt Date: 20140401
  Transmission Date: 20141212
  Serious: No
  Sender: FDA-Public Use
  Company Number: US-ASTRAZENECA-2012SE77274

PATIENT
  Age: 43 Year
  Sex: Female
  Weight: 117.9 kg

DRUGS (10)
  1. NEXIUM [Suspect]
     Indication: GASTROOESOPHAGEAL REFLUX DISEASE
     Route: 048
     Dates: start: 2008, end: 20131028
  2. TOPAMAX [Concomitant]
     Indication: MIGRAINE
  3. TOPAMAX [Concomitant]
     Indication: MIGRAINE
     Dates: start: 2006
  4. CLONIDIN [Concomitant]
     Indication: HYPERTENSION
     Route: 048
     Dates: start: 2006
  5. LYRICA [Concomitant]
     Indication: HYPOAESTHESIA
     Route: 048
     Dates: start: 2008
  6. LIPITOR [Concomitant]
     Indication: BLOOD CHOLESTEROL
     Route: 048
     Dates: start: 2010
  7. CYMBALTA [Concomitant]
     Indication: DEPRESSION
     Route: 048
     Dates: start: 2013
  8. TRAZADONE [Concomitant]
     Indication: SLEEP DISORDER
     Dosage: 300 MG QHS
     Route: 048
     Dates: start: 2012
  9. RELPAX [Concomitant]
     Indication: MIGRAINE
     Route: 048
     Dates: start: 2006
  10. TUMS [Concomitant]
     Indication: GASTROOESOPHAGEAL REFLUX DISEASE
     Dosage: PRN
     Route: 048
     Dates: start: 20131031

REACTIONS (5)
  - Dyspepsia [Unknown]
  - Blood cholesterol increased [Unknown]
  - Migraine [Unknown]
  - Abdominal discomfort [Unknown]
  - Drug dose omission [Unknown]
